FAERS Safety Report 18646042 (Version 2)
Quarter: 2021Q1

REPORT INFORMATION
  Report Type: Report from Study
  Country: US (occurrence: US)
  Receive Date: 20201221
  Receipt Date: 20210308
  Transmission Date: 20210419
  Serious: Yes (Hospitalization, Other)
  Sender: FDA-Public Use
  Company Number: US-BRISTOL-MYERS SQUIBB COMPANY-BMS-2020-109009

PATIENT
  Age: 60 Year
  Sex: Female
  Weight: 57.8 kg

DRUGS (2)
  1. NIVOLUMAB [Suspect]
     Active Substance: NIVOLUMAB
     Indication: METASTATIC NEOPLASM
     Dosage: 480 MILLIGRAM, Q4WK
     Route: 042
     Dates: start: 20201002
  2. LUCITANIB. [Suspect]
     Active Substance: LUCITANIB
     Indication: METASTATIC NEOPLASM
     Dosage: 6 MILLIGRAM, QD
     Route: 048
     Dates: start: 20201002

REACTIONS (1)
  - Cerebrovascular accident [Unknown]

NARRATIVE: CASE EVENT DATE: 20201211
